FAERS Safety Report 16810781 (Version 2)
Quarter: 2019Q4

REPORT INFORMATION
  Report Type: Spontaneous
  Country: US (occurrence: US)
  Receive Date: 20190916
  Receipt Date: 20191018
  Transmission Date: 20200122
  Serious: No
  Sender: FDA-Public Use
  Company Number: US-ELI_LILLY_AND_COMPANY-US201909007089

PATIENT
  Sex: Male

DRUGS (1)
  1. EMGALITY [Suspect]
     Active Substance: GALCANEZUMAB-GNLM
     Indication: MIGRAINE
     Dosage: 1 DOSAGE FORM, UNKNOWN
     Route: 065
     Dates: start: 20190828

REACTIONS (8)
  - Somnolence [Recovered/Resolved]
  - Paraesthesia oral [Unknown]
  - Asthenopia [Recovered/Resolved]
  - Feeling abnormal [Recovered/Resolved]
  - Aphasia [Unknown]
  - Fatigue [Recovered/Resolved]
  - Paraesthesia [Unknown]
  - Swelling face [Recovered/Resolved]

NARRATIVE: CASE EVENT DATE: 20190828
